FAERS Safety Report 14568870 (Version 9)
Quarter: 2019Q2

REPORT INFORMATION
  Report Type: Report from Study
  Country: DE (occurrence: DE)
  Receive Date: 20180223
  Receipt Date: 20190607
  Transmission Date: 20190711
  Serious: Yes (Death, Life-Threatening, Hospitalization, Congenital Anomaly, Other)
  Sender: FDA-Public Use
  Company Number: PHHY2017DE045378

PATIENT
  Age: 71 Year
  Sex: Female
  Weight: 71 kg

DRUGS (8)
  1. ENTRESTO [Suspect]
     Active Substance: SACUBITRIL\VALSARTAN
     Dosage: 50 MG (24 MG SACUBITRIL/ 26 MG VALSARTAN), BID
     Route: 048
     Dates: start: 20170213, end: 20170216
  2. ENTRESTO [Suspect]
     Active Substance: SACUBITRIL\VALSARTAN
     Dosage: 100 MG (0.5-0-0.5) (49 MG SACUBITRIL/ 51 MG VALSARTAN), BID
     Route: 048
     Dates: start: 20170220
  3. IVABRADINE [Concomitant]
     Active Substance: IVABRADINE
     Indication: CARDIAC FAILURE CHRONIC
     Dosage: 5 MG, BID
     Route: 048
  4. ENTRESTO [Suspect]
     Active Substance: SACUBITRIL\VALSARTAN
     Indication: CARDIAC FAILURE CHRONIC
     Dosage: 50 MG (24 MG SACUBITRIL/ 26 MG VALSARTAN), BID
     Route: 048
     Dates: start: 20170112, end: 20170206
  5. TORASEMIDE [Concomitant]
     Active Substance: TORSEMIDE
     Indication: CARDIAC FAILURE CHRONIC
     Dosage: 10 MG, QD
     Route: 048
     Dates: start: 20131127
  6. TORASEMIDE [Concomitant]
     Active Substance: TORSEMIDE
     Indication: CARDIAC FAILURE
     Dosage: 1.5 DF, QD
     Route: 048
     Dates: start: 20170313
  7. ENTRESTO [Suspect]
     Active Substance: SACUBITRIL\VALSARTAN
     Indication: CARDIAC FAILURE
     Dosage: 100 MG (49 MG SACUBITRIL/ 51 MG VALSARTAN), BID
     Route: 048
     Dates: start: 20170206, end: 20170213
  8. TORASEMIDE [Concomitant]
     Active Substance: TORSEMIDE
     Dosage: 20 MG, QD
     Route: 048
     Dates: start: 20170314

REACTIONS (22)
  - Hypotension [Fatal]
  - Cardiac failure [Recovered/Resolved with Sequelae]
  - Fall [Recovering/Resolving]
  - Cardiac failure [Fatal]
  - Ileus [Unknown]
  - Peritoneal adhesions [Unknown]
  - Tricuspid valve incompetence [Not Recovered/Not Resolved]
  - Gout [Recovered/Resolved]
  - Product prescribing error [Unknown]
  - Pleural effusion [Recovered/Resolved with Sequelae]
  - Fear [Fatal]
  - Fall [Recovered/Resolved]
  - Cardiac failure [Recovered/Resolved with Sequelae]
  - Pneumonia [Recovered/Resolved]
  - Hypotension [Recovered/Resolved with Sequelae]
  - Mitral valve incompetence [Not Recovered/Not Resolved]
  - Wrong technique in product usage process [Unknown]
  - Tachycardia [Recovered/Resolved with Sequelae]
  - Clavicle fracture [Recovered/Resolved]
  - Agitation [Fatal]
  - Cardiac failure congestive [Fatal]
  - Asthenia [Recovered/Resolved]

NARRATIVE: CASE EVENT DATE: 20170313
